FAERS Safety Report 6409474-8 (Version None)
Quarter: 2009Q4

REPORT INFORMATION
  Report Type: 
  Country: None (occurrence: None)
  Receive Date: 20091016
  Receipt Date: 20091001
  Transmission Date: 20100525
  Serious: Yes (Death, Congenital Anomaly)
  Sender: FDA-Public Use
  Company Number: 2009-2072-003

PATIENT
  Sex: Female

DRUGS (1)
  1. RIBAVIRIN [Suspect]
     Indication: HEPATITIS C
     Dosage: DAILY, ORAL
     Route: 048
     Dates: start: 20060101, end: 20070101

REACTIONS (4)
  - DEATH NEONATAL [None]
  - DRUG EXPOSURE BEFORE PREGNANCY [None]
  - HYDROCEPHALUS [None]
  - SPINA BIFIDA [None]
